FAERS Safety Report 7964399-1 (Version None)
Quarter: 2011Q4

REPORT INFORMATION
  Report Type: 
  Country: None (occurrence: None)
  Receive Date: 20111208
  Receipt Date: 20111201
  Transmission Date: 20120403
  Serious: Yes (Death, Life-Threatening, Other)
  Sender: FDA-Public Use
  Company Number: US-JNJFOC-20100809307

PATIENT
  Sex: Male
  Weight: 118 kg

DRUGS (22)
  1. ETANERCEPT [Suspect]
     Indication: RHEUMATOID ARTHRITIS
  2. HYDROCHLOROTHIAZIDE [Concomitant]
     Route: 048
     Dates: start: 20010101
  3. GARLIC [Concomitant]
     Route: 048
     Dates: start: 20050101
  4. ZETIA [Concomitant]
     Route: 048
     Dates: start: 20061116
  5. PREDNISONE TAB [Concomitant]
     Route: 048
     Dates: start: 20080826, end: 20090113
  6. GOLIMUMAB [Suspect]
     Route: 058
     Dates: start: 20081023
  7. DICLOFENAC SODIUM [Concomitant]
     Route: 048
     Dates: start: 20041201
  8. FOLIC ACID [Concomitant]
     Route: 048
     Dates: start: 20060615
  9. GOLIMUMAB [Suspect]
     Indication: RHEUMATOID ARTHRITIS
     Route: 058
     Dates: start: 20100706
  10. ENALAPRIL MALEATE [Concomitant]
     Route: 048
     Dates: start: 20010101
  11. PRILOSEC [Concomitant]
     Route: 048
     Dates: start: 20061116
  12. GLUCOSAMINE [Concomitant]
     Route: 048
     Dates: start: 20040101
  13. PROCARDIA XL [Concomitant]
     Route: 048
     Dates: start: 20010101
  14. FERROUS SULFATE TAB [Concomitant]
     Route: 048
     Dates: start: 20080605
  15. METFORMIN HCL [Concomitant]
     Route: 048
     Dates: start: 20080606
  16. ROXICODONE [Concomitant]
     Route: 048
     Dates: start: 20080711
  17. PREDNISONE TAB [Concomitant]
     Route: 048
     Dates: start: 20090114
  18. NIASPAN [Concomitant]
     Route: 048
     Dates: start: 20030101
  19. ASPIRIN [Concomitant]
     Route: 048
     Dates: start: 20030101
  20. GOLIMUMAB [Suspect]
     Route: 058
     Dates: start: 20060831, end: 20080926
  21. ATENOLOL [Concomitant]
     Route: 048
     Dates: start: 20010101
  22. METHOTREXATE [Concomitant]
     Route: 048
     Dates: start: 20080710

REACTIONS (1)
  - T-CELL TYPE ACUTE LEUKAEMIA [None]
